FAERS Safety Report 5717912-9 (Version None)
Quarter: 2008Q2

REPORT INFORMATION
  Report Type: 
  Country: None (occurrence: None)
  Receive Date: 20080425
  Receipt Date: 20080128
  Transmission Date: 20081010
  Serious: No
  Sender: FDA-Public Use
  Company Number: US-ABBOTT-08P-163-0435843-00

PATIENT
  Sex: Female
  Weight: 57.204 kg

DRUGS (2)
  1. ERY-TAB 333MG [Suspect]
     Indication: BRONCHITIS
     Route: 048
     Dates: start: 20080123, end: 20080124
  2. ERY-TAB 333MG [Suspect]
     Indication: SINUSITIS

REACTIONS (6)
  - ABDOMINAL PAIN LOWER [None]
  - CONSTIPATION [None]
  - DIZZINESS [None]
  - DYSPEPSIA [None]
  - NAUSEA [None]
  - TREMOR [None]
